FAERS Safety Report 7517186-2 (Version None)
Quarter: 2011Q2

REPORT INFORMATION
  Report Type: 
  Country: None (occurrence: None)
  Receive Date: 20110601
  Receipt Date: 20110523
  Transmission Date: 20111010
  Serious: Yes (Hospitalization, Other)
  Sender: FDA-Public Use
  Company Number: US-ASTRAZENECA-2011SE31637

PATIENT
  Age: 40 Year
  Sex: Female

DRUGS (1)
  1. TOPROL-XL [Suspect]
     Route: 048

REACTIONS (3)
  - DIABETES MELLITUS [None]
  - TRANSPLANT [None]
  - CARDIAC OPERATION [None]
